FAERS Safety Report 15776976 (Version 2)
Quarter: 2019Q1

REPORT INFORMATION
  Report Type: Report from Study
  Country: CA (occurrence: CA)
  Receive Date: 20181231
  Receipt Date: 20190108
  Transmission Date: 20190417
  Serious: Yes (Other)
  Sender: FDA-Public Use
  Company Number: CA-GLAXOSMITHKLINE-CA2018226747

PATIENT
  Age: 66 Year
  Sex: Female
  Weight: 75 kg

DRUGS (1)
  1. PLACEBO [Suspect]
     Active Substance: UNSPECIFIED INGREDIENT
     Indication: NASAL POLYPS
     Dosage: 100 MG, CYC
     Route: 058
     Dates: start: 20180516

REACTIONS (2)
  - Renal disorder [Recovering/Resolving]
  - Nephrotic syndrome [Recovering/Resolving]

NARRATIVE: CASE EVENT DATE: 20181213
